FAERS Safety Report 4327131-9 (Version None)
Quarter: 2004Q1

REPORT INFORMATION
  Report Type: 
  Country: None (occurrence: None)
  Receive Date: 20040330
  Receipt Date: 20040227
  Transmission Date: 20041129
  Serious: Yes (Other)
  Sender: FDA-Public Use
  Company Number: US-GLAXOSMITHKLINE-A0500403A

PATIENT
  Age: 29 Year
  Sex: Female
  Weight: 72.5 kg

DRUGS (2)
  1. PAXIL [Suspect]
     Indication: DRUG USE FOR UNKNOWN INDICATION
     Dosage: 50MG PER DAY
     Route: 048
     Dates: start: 20020101, end: 20040201
  2. NO CONCURRENT MEDICATION [Concomitant]

REACTIONS (3)
  - HAEMORRHAGE [None]
  - INCREASED TENDENCY TO BRUISE [None]
  - PLATELET AGGREGATION [None]
